FAERS Safety Report 10555171 (Version 16)
Quarter: 2015Q4

REPORT INFORMATION
  Report Type: Report from Study
  Country: US (occurrence: US)
  Receive Date: 20141030
  Receipt Date: 20151215
  Transmission Date: 20160304
  Serious: Yes (Life-Threatening, Hospitalization, Other)
  Sender: FDA-Public Use
  Company Number: US-ALEXION-A201404091

PATIENT
  Sex: Female

DRUGS (8)
  1. GM-CSF [Concomitant]
     Active Substance: GRANULOCYTE-MACROPHAGE COLONY-STIMULATING FACTOR
     Indication: WHITE BLOOD CELL COUNT ABNORMAL
     Dosage: 3 DAILY DOSES
     Route: 065
  2. NEUPOGEN [Concomitant]
     Active Substance: FILGRASTIM
     Dosage: UNK, QW
     Route: 065
  3. PROCRIT [Concomitant]
     Active Substance: ERYTHROPOIETIN
     Indication: ASTHMA
     Route: 065
  4. VANCOMYCIN [Concomitant]
     Active Substance: VANCOMYCIN
     Indication: PRODUCT USED FOR UNKNOWN INDICATION
     Route: 065
  5. SOLIRIS [Suspect]
     Active Substance: ECULIZUMAB
     Indication: HAEMOLYTIC URAEMIC SYNDROME
     Dosage: UNK
     Route: 042
  6. SOLIRIS [Suspect]
     Active Substance: ECULIZUMAB
     Dosage: 900 MG, UNK
     Route: 042
     Dates: end: 20150904
  7. ADVAIR HFA [Concomitant]
     Active Substance: FLUTICASONE PROPIONATE\SALMETEROL XINAFOATE
     Indication: ASTHMA
     Route: 065
  8. NEUPOGEN [Concomitant]
     Active Substance: FILGRASTIM
     Indication: ASTHMA
     Dosage: UNK, QD
     Route: 065

REACTIONS (32)
  - Arteriovenous graft site infection [Unknown]
  - Wound [Unknown]
  - Hypotension [Unknown]
  - Sepsis [Unknown]
  - Pericarditis [Recovered/Resolved]
  - Haemoglobin abnormal [Recovering/Resolving]
  - Seizure [Unknown]
  - Pneumonia [Not Recovered/Not Resolved]
  - Infection [Unknown]
  - Angiopathy [Unknown]
  - Pyrexia [Unknown]
  - Sepsis [Recovered/Resolved]
  - White blood cell count decreased [Unknown]
  - Fatigue [Recovering/Resolving]
  - Red blood cell count decreased [Unknown]
  - Pyrexia [Unknown]
  - Swelling [Unknown]
  - Abscess [Recovered/Resolved]
  - Fatigue [Unknown]
  - Cardiac valve disease [Unknown]
  - Asthenia [Unknown]
  - Localised infection [Unknown]
  - Platelet count decreased [Unknown]
  - Haemoglobin decreased [Unknown]
  - Unevaluable event [Unknown]
  - Platelet count decreased [Unknown]
  - Infection [Unknown]
  - Haemoglobin abnormal [Unknown]
  - Haemoglobin decreased [Unknown]
  - Fistula [Unknown]
  - Catheter site infection [Unknown]
  - Haematocrit decreased [Unknown]

NARRATIVE: CASE EVENT DATE: 20141011
